FAERS Safety Report 24039020 (Version 2)
Quarter: 2024Q3

REPORT INFORMATION
  Report Type: Spontaneous
  Country: US (occurrence: US)
  Receive Date: 20240702
  Receipt Date: 20240807
  Transmission Date: 20241017
  Serious: No
  Sender: JOHNSON AND JOHNSON
  Company Number: US-JNJFOC-20240676779

PATIENT
  Age: 58 Year
  Sex: Female

DRUGS (11)
  1. SPRAVATO [Suspect]
     Active Substance: ESKETAMINE
     Indication: Depression
     Dosage: 19TH TREATMENT
     Dates: end: 20240627
  2. SPRAVATO [Suspect]
     Active Substance: ESKETAMINE
     Dates: start: 20240319, end: 20240703
  3. ADDERALL [Suspect]
     Active Substance: AMPHETAMINE ASPARTATE\AMPHETAMINE SULFATE\DEXTROAMPHETAMINE SACCHARATE\DEXTROAMPHETAMINE SULFATE
     Indication: Attention deficit hyperactivity disorder
     Route: 048
  4. CLONIDINE [Concomitant]
     Active Substance: CLONIDINE
     Route: 065
  5. VYVANSE [Concomitant]
     Active Substance: LISDEXAMFETAMINE DIMESYLATE
  6. DULOXETINE [Concomitant]
     Active Substance: DULOXETINE
     Route: 065
  7. FLUOXETINE [Concomitant]
     Active Substance: FLUOXETINE HYDROCHLORIDE
     Route: 065
  8. TRAZODONE [Concomitant]
     Active Substance: TRAZODONE HYDROCHLORIDE
     Dosage: 25-50 MG
     Route: 065
  9. METFORMIN [Concomitant]
     Active Substance: METFORMIN HYDROCHLORIDE
     Route: 065
  10. AMLODIPINE [Concomitant]
     Active Substance: AMLODIPINE BESYLATE
     Route: 065
  11. CHOLECALCIFEROL [Concomitant]
     Active Substance: CHOLECALCIFEROL
     Dosage: 50000 UNITS
     Route: 065

REACTIONS (7)
  - Hypertension [Recovered/Resolved]
  - Vomiting [Recovered/Resolved]
  - Feeling hot [Recovered/Resolved]
  - Feeling abnormal [Recovered/Resolved]
  - Abdominal pain [Unknown]
  - Nausea [Not Recovered/Not Resolved]
  - Dissociation [Unknown]

NARRATIVE: CASE EVENT DATE: 20240627
